FAERS Safety Report 7385534-2 (Version None)
Quarter: 2011Q1

REPORT INFORMATION
  Report Type: 
  Country: None (occurrence: None)
  Receive Date: 20110331
  Receipt Date: 20110321
  Transmission Date: 20110831
  Serious: Yes (Hospitalization)
  Sender: FDA-Public Use
  Company Number: US-BIOGENIDEC-2011BI011215

PATIENT
  Age: 34 Year
  Sex: Female

DRUGS (1)
  1. TYSABRI [Suspect]
     Indication: MULTIPLE SCLEROSIS
     Route: 042
     Dates: start: 20080702

REACTIONS (8)
  - DEHYDRATION [None]
  - BACTERIAL SEPSIS [None]
  - ABDOMINAL PAIN [None]
  - PULMONARY SEPSIS [None]
  - ANAEMIA [None]
  - VOMITING [None]
  - BLOOD POTASSIUM ABNORMAL [None]
  - DIARRHOEA [None]
